FAERS Safety Report 4689220-9 (Version None)
Quarter: 2005Q2

REPORT INFORMATION
  Report Type: 
  Country: None (occurrence: None)
  Receive Date: 20050608
  Receipt Date: 20050304
  Transmission Date: 20051028
  Serious: No
  Sender: FDA-Public Use
  Company Number: 2005-BP-03619BP

PATIENT
  Age: 65 Year
  Sex: Female

DRUGS (4)
  1. SPIRIVA [Suspect]
     Dosage: (18 MCG), IH
     Route: 055
  2. SPIRIVA [Suspect]
     Dosage: (18 MCG), IH
     Route: 055
  3. SPIRIVA [Suspect]
     Dosage: (18 MCG), IH
     Route: 055
  4. SPIRIVA [Suspect]
     Dosage: (18 MCG), IH
     Route: 055

REACTIONS (1)
  - DRUG INEFFECTIVE [None]
